FAERS Safety Report 20841764 (Version 1)
Quarter: 2022Q2

REPORT INFORMATION
  Report Type: Spontaneous
  Country: US (occurrence: US)
  Receive Date: 20220518
  Receipt Date: 20220518
  Transmission Date: 20220720
  Serious: No
  Sender: FDA-Public Use
  Company Number: US-BRISTOL-MYERS SQUIBB COMPANY-2022-024770

PATIENT
  Age: 61 Year
  Sex: Female

DRUGS (4)
  1. REVLIMID [Suspect]
     Active Substance: LENALIDOMIDE
     Indication: Product used for unknown indication
     Dosage: TAKE 1 CAPSULE BY MOUTH DAILY FOR 21 DAYS OF 28 DAY CYCLE
     Route: 048
     Dates: start: 20220203
  2. AMLODIPINE TAB [Concomitant]
     Indication: Product used for unknown indication
  3. ASPIRIN LOW TAB [Concomitant]
     Indication: Product used for unknown indication
  4. VALACYCLOVIR TAB [Concomitant]
     Indication: Product used for unknown indication

REACTIONS (1)
  - White blood cell count decreased [Unknown]

NARRATIVE: CASE EVENT DATE: 20220402
